FAERS Safety Report 4582978-9 (Version None)
Quarter: 2005Q1

REPORT INFORMATION
  Report Type: 
  Country: None (occurrence: None)
  Receive Date: 20050127
  Receipt Date: 20041007
  Transmission Date: 20050727
  Serious: No
  Sender: FDA-Public Use
  Company Number: USA040978776

PATIENT
  Age: 50 Year
  Sex: Male
  Weight: 98 kg

DRUGS (5)
  1. STRATTERA [Suspect]
     Indication: DEPRESSION
     Dosage: 60 MG DAY
     Dates: start: 20040901
  2. TYLENOL (CAPLET) [Concomitant]
  3. DAILY VITAMINS [Concomitant]
  4. PAXIL [Concomitant]
  5. SERZONE [Concomitant]

REACTIONS (12)
  - ANTISOCIAL BEHAVIOUR [None]
  - ANXIETY [None]
  - ARTHRALGIA [None]
  - DEPRESSION [None]
  - DRUG INEFFECTIVE [None]
  - DRY MOUTH [None]
  - FEELING ABNORMAL [None]
  - HYPERHIDROSIS [None]
  - INSOMNIA [None]
  - NERVOUSNESS [None]
  - PSYCHOMOTOR HYPERACTIVITY [None]
  - SUICIDAL IDEATION [None]
